FAERS Safety Report 6335431-6 (Version None)
Quarter: 2009Q3

REPORT INFORMATION
  Report Type: 
  Country: None (occurrence: None)
  Receive Date: 20090831
  Receipt Date: 20090820
  Transmission Date: 20100115
  Serious: Yes (Hospitalization)
  Sender: FDA-Public Use
  Company Number: US-GILEAD-2009-0023694

PATIENT
  Sex: Male
  Weight: 62.652 kg

DRUGS (6)
  1. TRUVADA [Suspect]
     Indication: HIV INFECTION
     Route: 048
     Dates: start: 20090729, end: 20090806
  2. DARUNAVIR [Concomitant]
     Indication: HIV INFECTION
     Dates: start: 20090729, end: 20090806
  3. RALTEGAVIR [Concomitant]
     Indication: HIV INFECTION
     Dates: start: 20090729, end: 20090806
  4. BACTRIM [Concomitant]
  5. FLUCONAZOLE [Concomitant]
  6. AZITHROMYCIN [Concomitant]

REACTIONS (1)
  - SMALL INTESTINAL PERFORATION [None]
